FAERS Safety Report 6871687-9 (Version None)
Quarter: 2010Q3

REPORT INFORMATION
  Report Type: 
  Country: None (occurrence: None)
  Receive Date: 20100723
  Receipt Date: 20100715
  Transmission Date: 20110219
  Serious: Yes (Other)
  Sender: FDA-Public Use
  Company Number: A0431159A

PATIENT
  Age: 58 Year
  Sex: Male

DRUGS (6)
  1. AVANDAMET [Suspect]
     Dosage: 1TAB TWICE PER DAY
     Route: 048
     Dates: start: 20031021
  2. AVANDIA [Suspect]
     Indication: PRODUCT USED FOR UNKNOWN INDICATION
     Route: 048
  3. CHOLESTEROL REDUCING AGENT NAME NOT KNOWN [Concomitant]
  4. ALTACE [Concomitant]
  5. FOLIC ACID [Concomitant]
  6. NIACIN [Concomitant]

REACTIONS (8)
  - BLOOD GLUCOSE INCREASED [None]
  - DIZZINESS [None]
  - MALAISE [None]
  - PARAESTHESIA [None]
  - SYNCOPE [None]
  - TINNITUS [None]
  - VISION BLURRED [None]
  - VISUAL ACUITY REDUCED [None]
